FAERS Safety Report 5149289-4 (Version None)
Quarter: 2006Q4

REPORT INFORMATION
  Report Type: 
  Country: None (occurrence: None)
  Receive Date: 20061113
  Receipt Date: 20051026
  Transmission Date: 20070319
  Serious: No
  Sender: FDA-Public Use
  Company Number: 423379

PATIENT
  Age: 70 Year
  Sex: Female

DRUGS (14)
  1. COREG [Suspect]
     Indication: HYPERTENSION
     Dosage: 6.25MG TWICE PER DAY
     Route: 048
     Dates: start: 20051013
  2. AMARYL [Concomitant]
  3. GLUCOPHAGE [Concomitant]
  4. CITRACAL [Concomitant]
  5. TAMARIND [Concomitant]
  6. COZAAR [Concomitant]
  7. UNKNOWN MEDICATION [Concomitant]
  8. SYNTHROID [Concomitant]
  9. VYTORIN [Concomitant]
  10. LASIX [Concomitant]
  11. FOLIC ACID [Concomitant]
  12. OCUVITE [Concomitant]
  13. ASPIRIN [Concomitant]
  14. CENTRUM SILVER [Concomitant]

REACTIONS (6)
  - ABDOMINAL DISTENSION [None]
  - ABDOMINAL PAIN UPPER [None]
  - DIARRHOEA [None]
  - DYSPEPSIA [None]
  - FATIGUE [None]
  - HYPERHIDROSIS [None]
